FAERS Safety Report 4310350-5 (Version None)
Quarter: 2004Q1

REPORT INFORMATION
  Report Type: 
  Country: None (occurrence: None)
  Receive Date: 20040303
  Receipt Date: 20030825
  Transmission Date: 20041129
  Serious: Yes (Death, Hospitalization)
  Sender: FDA-Public Use
  Company Number: MX-ROCHE-345484

PATIENT
  Age: 28 Year
  Sex: Male

DRUGS (7)
  1. DACLIZUMAB [Suspect]
     Route: 042
     Dates: start: 20030324, end: 20030324
  2. DACLIZUMAB [Suspect]
     Route: 042
     Dates: start: 20030407, end: 20030519
  3. MYCOPHENOLATE MOFETIL [Suspect]
     Route: 048
     Dates: start: 20030324
  4. RAPAMUNE [Suspect]
     Route: 048
     Dates: start: 20030324
  5. PREDNISOLONE [Suspect]
     Route: 048
     Dates: start: 20030324
  6. SULFAMETHOXAZOLE [Concomitant]
     Route: 048
     Dates: start: 20030324
  7. NIFEDIPINE [Concomitant]
     Route: 048
     Dates: start: 20030324

REACTIONS (11)
  - COAGULOPATHY [None]
  - DIARRHOEA [None]
  - GIARDIASIS [None]
  - METABOLIC ACIDOSIS [None]
  - MULTI-ORGAN FAILURE [None]
  - PNEUMOCYSTIS CARINII PNEUMONIA [None]
  - PNEUMONIA [None]
  - PYREXIA [None]
  - RESPIRATORY ACIDOSIS [None]
  - RESPIRATORY FAILURE [None]
  - SYSTEMIC CANDIDA [None]
